FAERS Safety Report 8736470 (Version 5)
Quarter: 2014Q1

REPORT INFORMATION
  Report Type: Spontaneous
  Country: US (occurrence: US)
  Receive Date: 20120822
  Receipt Date: 20140207
  Transmission Date: 20141002
  Serious: Yes (Other)
  Sender: FDA-Public Use
  Company Number: US-PFIZER INC-2012204674

PATIENT
  Age: 64 Year
  Sex: Female
  Weight: 74 kg

DRUGS (6)
  1. ZOLOFT [Suspect]
     Indication: MAJOR DEPRESSION
     Dosage: 200 MG, 1X/DAY
     Route: 048
  2. ZOLOFT [Suspect]
     Dosage: 200 MG, 1X/DAY
     Route: 048
  3. SERTRALINE HCL [Suspect]
     Indication: MAJOR DEPRESSION
     Dosage: 100 MG, 1X/DAY
     Route: 048
     Dates: end: 2012
  4. ALPRAZOLAM [Concomitant]
     Indication: ANXIETY
     Dosage: 1MG, EVERY 6 HOURS, AS NEEDED
  5. CLONAZEPAM [Concomitant]
     Indication: ANXIETY
     Dosage: UNK
  6. NEURONTIN [Concomitant]
     Indication: NEURALGIA
     Dosage: UNK

REACTIONS (11)
  - Drug ineffective [Unknown]
  - Depression [Unknown]
  - Suicidal ideation [Unknown]
  - Spinal osteoarthritis [Not Recovered/Not Resolved]
  - Spinal column stenosis [Not Recovered/Not Resolved]
  - Body height decreased [Not Recovered/Not Resolved]
  - Nasopharyngitis [Not Recovered/Not Resolved]
  - Respiratory tract congestion [Not Recovered/Not Resolved]
  - Cough [Not Recovered/Not Resolved]
  - Inflammation [Not Recovered/Not Resolved]
  - Nasal congestion [Not Recovered/Not Resolved]
